FAERS Safety Report 7679195-2 (Version None)
Quarter: 2011Q3

REPORT INFORMATION
  Report Type: 
  Country: None (occurrence: None)
  Receive Date: 20110812
  Receipt Date: 20110802
  Transmission Date: 20111222
  Serious: No
  Sender: FDA-Public Use
  Company Number: US-JNJFOC-20110802755

PATIENT
  Sex: Male
  Weight: 104.33 kg

DRUGS (7)
  1. DURAGESIC-100 [Suspect]
     Dosage: 150MCG/HR DOSE WORN AS TWO 75MCG/HR PATCHES
     Route: 062
     Dates: start: 20110501
  2. DURAGESIC-100 [Suspect]
     Indication: PAIN MANAGEMENT
     Dosage: 200MCG/HR DOSE WORN AS TWO 100MCG/HR PATCHES
     Route: 062
  3. DURAGESIC-100 [Suspect]
     Indication: BACK PAIN
     Dosage: 150MCG/HR DOSE WORN AS TWO 75MCG/HR PATCHES
     Route: 062
     Dates: start: 20110301, end: 20110501
  4. DURAGESIC-100 [Suspect]
     Dosage: 200MCG/HR DOSE WORN AS TWO 100MCG/HR PATCHES
     Route: 062
  5. DURAGESIC-100 [Suspect]
     Dosage: 150MCG/HR DOSE WORN AS TWO 75MCG/HR PATCHES
     Route: 062
     Dates: start: 20110501
  6. OXYCODONE HCL [Concomitant]
     Indication: BREAKTHROUGH PAIN
     Route: 048
     Dates: start: 20060101
  7. DURAGESIC-100 [Suspect]
     Dosage: 150MCG/HR DOSE WORN AS TWO 75MCG/HR PATCHES
     Route: 062
     Dates: start: 20110301, end: 20110501

REACTIONS (6)
  - MALAISE [None]
  - WRONG TECHNIQUE IN DRUG USAGE PROCESS [None]
  - DERMATITIS CONTACT [None]
  - DRUG EFFECT DECREASED [None]
  - PAIN [None]
  - NAUSEA [None]
